FAERS Safety Report 19816142 (Version 1)
Quarter: 2021Q3

REPORT INFORMATION
  Report Type: Report from Study
  Country: IT (occurrence: IT)
  Receive Date: 20210910
  Receipt Date: 20210910
  Transmission Date: 20211014
  Serious: Yes (Hospitalization)
  Sender: FDA-Public Use
  Company Number: IT-PFIZER INC-202101123609

PATIENT
  Age: 53 Year
  Sex: Male
  Weight: 71 kg

DRUGS (7)
  1. CYCLOPHOSPHAMIDE. [Concomitant]
     Active Substance: CYCLOPHOSPHAMIDE
     Indication: HIGH GRADE B-CELL LYMPHOMA BURKITT-LIKE LYMPHOMA
     Dosage: 1403 MG
     Route: 042
     Dates: start: 20210423, end: 20210712
  2. DOXORUBICIN HYDROCHLORIDE. [Concomitant]
     Active Substance: DOXORUBICIN HYDROCHLORIDE
     Indication: HIGH GRADE B-CELL LYMPHOMA BURKITT-LIKE LYMPHOMA
     Dosage: 93.5 MG
     Route: 042
     Dates: start: 20210427, end: 20210712
  3. ZARZIO [Concomitant]
     Active Substance: FILGRASTIM
     Dosage: 1 DF
     Route: 058
  4. ACICLOVIR [Concomitant]
     Active Substance: ACYCLOVIR
     Dosage: 800 MG
     Route: 048
  5. DIFLUCAN [Concomitant]
     Active Substance: FLUCONAZOLE
     Dosage: 400 MG
     Route: 048
  6. RITUXIMAB. [Suspect]
     Active Substance: RITUXIMAB
     Indication: HIGH GRADE B-CELL LYMPHOMA BURKITT-LIKE LYMPHOMA
     Dosage: 1400 MG, CYCLIC
     Route: 058
     Dates: start: 20210503, end: 20210712
  7. LINEZOLID. [Concomitant]
     Active Substance: LINEZOLID
     Dosage: 1200 MG
     Route: 048

REACTIONS (7)
  - Thrombocytopenia [Recovering/Resolving]
  - Anaemia [Recovering/Resolving]
  - Blood sodium decreased [Recovering/Resolving]
  - Febrile neutropenia [Recovering/Resolving]
  - Cough [Recovering/Resolving]
  - Catheter site haemorrhage [Recovering/Resolving]
  - Vomiting [Recovering/Resolving]

NARRATIVE: CASE EVENT DATE: 20210721
